FAERS Safety Report 16026513 (Version 1)
Quarter: 2019Q1

REPORT INFORMATION
  Report Type: Spontaneous
  Country: US (occurrence: US)
  Receive Date: 20190302
  Receipt Date: 20190302
  Transmission Date: 20190418
  Serious: No
  Sender: FDA-Public Use
  Company Number: US-TARO-2018TAR00540

PATIENT
  Sex: Female

DRUGS (1)
  1. TERCONAZOLE VAGINAL CREAM 0.4% [Suspect]
     Active Substance: TERCONAZOLE
     Indication: INFECTION
     Dosage: UNK
     Route: 067
     Dates: start: 20180718

REACTIONS (5)
  - Pain [Not Recovered/Not Resolved]
  - Product packaging issue [Unknown]
  - Urethral injury [Unknown]
  - Urethritis noninfective [Unknown]
  - Product package associated injury [Unknown]

NARRATIVE: CASE EVENT DATE: 20180718
